FAERS Safety Report 7583755-7 (Version None)
Quarter: 2011Q2

REPORT INFORMATION
  Report Type: 
  Country: None (occurrence: None)
  Receive Date: 20110630
  Receipt Date: 20110623
  Transmission Date: 20111010
  Serious: Yes (Hospitalization)
  Sender: FDA-Public Use
  Company Number: FR-ROCHE-785217

PATIENT
  Sex: Female

DRUGS (6)
  1. CIPROFLOXACIN [Suspect]
     Dosage: FORM: 200 MG/100 ML SOLUTION FOR INFUSION
     Route: 042
     Dates: start: 20110605, end: 20110609
  2. ATACAND [Suspect]
     Indication: HYPERTENSION
     Route: 048
     Dates: start: 20110603
  3. LASIX [Suspect]
     Indication: HYPERTENSION
     Route: 048
     Dates: start: 20110603
  4. VALACYCLOVIR HYDROCHLORIDE [Suspect]
     Indication: GENITAL HERPES
     Route: 048
     Dates: start: 20110604
  5. ROCEPHIN [Suspect]
     Route: 042
     Dates: start: 20110605, end: 20110613
  6. PANTOPRAZOLE [Suspect]
     Indication: GASTRIC ULCER
     Route: 048
     Dates: start: 20110603

REACTIONS (2)
  - HALLUCINATION, VISUAL [None]
  - CONFUSIONAL STATE [None]
